FAERS Safety Report 9227354 (Version 1)
Quarter: 2013Q2

REPORT INFORMATION
  Report Type: Spontaneous
  Country: US (occurrence: None)
  Receive Date: 20130411
  Receipt Date: 20130411
  Transmission Date: 20140414
  Serious: Yes (Hospitalization)
  Sender: FDA-Public Use
  Company Number: None

PATIENT
  Age: 83 Year
  Sex: Male
  Weight: 92 kg

DRUGS (11)
  1. GLIPIZIDE [Suspect]
     Indication: TYPE 2 DIABETES MELLITUS
     Dosage: CHRONIC USE 10 MG BID PO
     Route: 048
  2. COMBIVENT [Concomitant]
  3. APAP [Concomitant]
  4. TAMULOSIN [Concomitant]
  5. GABAPENTIN [Concomitant]
  6. DULERA [Concomitant]
  7. METOPROLOL [Concomitant]
  8. ASA [Concomitant]
  9. FINASTERIDE [Concomitant]
  10. LISINOPRIL [Concomitant]
  11. TERAZOSIN [Concomitant]

REACTIONS (2)
  - Hypoglycaemia [None]
  - Hypophagia [None]
